FAERS Safety Report 11005313 (Version 2)
Quarter: 2015Q2

REPORT INFORMATION
  Report Type: Spontaneous
  Country: AT (occurrence: AT)
  Receive Date: 20150409
  Receipt Date: 20150423
  Transmission Date: 20150821
  Serious: Yes (Other)
  Sender: FDA-Public Use
  Company Number: AT-PFIZER INC-2015121429

PATIENT
  Sex: Male

DRUGS (15)
  1. KALIORAL /00279301/ [Concomitant]
     Dosage: UNK
  2. SEROQUEL [Concomitant]
     Active Substance: QUETIAPINE FUMARATE
     Dosage: UNK
  3. TRITTICO [Concomitant]
     Active Substance: TRAZODONE HYDROCHLORIDE
     Dosage: UNK
  4. PASPERTIN /00041902/ [Concomitant]
     Active Substance: METOCLOPRAMIDE HYDROCHLORIDE
     Dosage: UNK
  5. CATAPRESAN /00171102/ [Concomitant]
     Dosage: UNK
  6. NOVALGIN [Concomitant]
     Active Substance: METAMIZOLE SODIUM
     Dosage: UNK
  7. PANTOLOC [Suspect]
     Active Substance: PANTOPRAZOLE SODIUM
     Indication: GASTRITIS PROPHYLAXIS
     Dosage: 80 MG, DAILY
     Route: 042
  8. KREON /01574201/ [Concomitant]
     Dosage: UNK
  9. MIRTAZAPIN [Concomitant]
     Active Substance: MIRTAZAPINE
     Dosage: UNK
  10. EPOETIN THETA [Concomitant]
     Active Substance: ERYTHROPOIETIN
     Dosage: UNK
  11. LOVENOX [Concomitant]
     Active Substance: ENOXAPARIN SODIUM
     Dosage: UNK
  12. MOTILIUM [Concomitant]
     Active Substance: DOMPERIDONE
     Dosage: UNK
  13. FENTORON [Concomitant]
     Dosage: UNK
  14. RISPERIDON [Concomitant]
     Active Substance: RISPERIDONE
     Dosage: UNK
  15. SEROPRAM /00582602/ [Concomitant]
     Dosage: UNK

REACTIONS (3)
  - Vomiting [Recovering/Resolving]
  - Gastric disorder [Unknown]
  - Product use issue [Unknown]
